FAERS Safety Report 15026660 (Version 1)
Quarter: 2018Q2

REPORT INFORMATION
  Report Type: Spontaneous
  Country: JP (occurrence: JP)
  Receive Date: 20180618
  Receipt Date: 20180618
  Transmission Date: 20180711
  Serious: Yes (Other)
  Sender: FDA-Public Use
  Company Number: JP-SHIRE-JP201819096

PATIENT

DRUGS (3)
  1. PENTASA [Suspect]
     Active Substance: MESALAMINE
     Indication: PRODUCT USED FOR UNKNOWN INDICATION
     Route: 065
  2. LIALDA [Suspect]
     Active Substance: MESALAMINE
     Indication: PRODUCT USED FOR UNKNOWN INDICATION
     Dosage: 4800 MG, UNK
     Route: 048
     Dates: start: 20180416
  3. ASACOL [Concomitant]
     Active Substance: MESALAMINE
     Indication: PRODUCT USED FOR UNKNOWN INDICATION

REACTIONS (8)
  - Condition aggravated [Recovered/Resolved]
  - Palpitations [Unknown]
  - Haematochezia [Recovered/Resolved]
  - Nausea [Unknown]
  - Abdominal distension [Unknown]
  - Mucous stools [Recovering/Resolving]
  - Decreased appetite [Unknown]
  - Urticaria [Unknown]

NARRATIVE: CASE EVENT DATE: 20180416
